FAERS Safety Report 25667151 (Version 1)
Quarter: 2025Q3

REPORT INFORMATION
  Report Type: Spontaneous
  Country: US (occurrence: US)
  Receive Date: 20250811
  Receipt Date: 20250811
  Transmission Date: 20251021
  Serious: No
  Sender: GALDERMA
  Company Number: US-GALDERMA-US2025011534

PATIENT

DRUGS (5)
  1. PROACTIV MD ADAPALENE ACNE TREATMENT [Suspect]
     Active Substance: ADAPALENE
     Indication: Product used for unknown indication
     Route: 061
  2. COSMETICS [Concomitant]
     Active Substance: COSMETICS
     Indication: Product used for unknown indication
  3. COSMETICS [Concomitant]
     Active Substance: COSMETICS
     Indication: Product used for unknown indication
  4. COSMETICS [Concomitant]
     Active Substance: COSMETICS
     Indication: Product used for unknown indication
  5. COSMETICS [Concomitant]
     Active Substance: COSMETICS
     Indication: Product used for unknown indication

REACTIONS (1)
  - Drug ineffective [Unknown]
